FAERS Safety Report 5782582-0 (Version None)
Quarter: 2008Q2

REPORT INFORMATION
  Report Type: 
  Country: None (occurrence: None)
  Receive Date: 20080624
  Receipt Date: 20080612
  Transmission Date: 20081010
  Serious: Yes (Life-Threatening)
  Sender: FDA-Public Use
  Company Number: JP-PFIZER INC-2008050163

PATIENT
  Age: 44 Year
  Sex: Female

DRUGS (2)
  1. ZITHROMAX [Suspect]
     Indication: NASOPHARYNGITIS
     Dosage: DAILY DOSE:500MG
     Route: 048
  2. COLDRIN [Concomitant]
     Indication: COUGH
     Route: 048

REACTIONS (2)
  - CARDIO-RESPIRATORY ARREST [None]
  - ELECTROCARDIOGRAM QT PROLONGED [None]
